FAERS Safety Report 9465910 (Version 1)
Quarter: 2013Q3

REPORT INFORMATION
  Report Type: Spontaneous
  Country: FR (occurrence: FR)
  Receive Date: 20130820
  Receipt Date: 20130820
  Transmission Date: 20140515
  Serious: Yes (Hospitalization)
  Sender: FDA-Public Use
  Company Number: FR-ELI_LILLY_AND_COMPANY-FR201308003983

PATIENT
  Age: 58 Year
  Sex: Male

DRUGS (2)
  1. ALIMTA [Suspect]
     Indication: METASTATIC BRONCHIAL CARCINOMA
     Dosage: 500 MG, UNKNOWN
     Route: 042
     Dates: start: 20120724
  2. NEULASTA [Concomitant]

REACTIONS (5)
  - Febrile neutropenia [Recovered/Resolved]
  - White blood cell count decreased [Recovered/Resolved]
  - Acute respiratory distress syndrome [Unknown]
  - Staphylococcal infection [Unknown]
  - Skin toxicity [Unknown]
